FAERS Safety Report 4667121-X (Version None)
Quarter: 2005Q2

REPORT INFORMATION
  Report Type: 
  Country: None (occurrence: None)
  Receive Date: 20050520
  Receipt Date: 20050207
  Transmission Date: 20051028
  Serious: Yes (Other)
  Sender: FDA-Public Use
  Company Number: PHBS2005SE01953

PATIENT
  Age: 46 Year
  Sex: Female

DRUGS (5)
  1. ZOMETA [Suspect]
     Indication: METASTASES TO BONE
     Dosage: 4 MG, TIW
     Route: 042
     Dates: start: 20020411, end: 20030609
  2. ZOMETA [Suspect]
     Dosage: 4 MG, Q4W
     Route: 042
     Dates: start: 20030610, end: 20041201
  3. BONDRONAT [Concomitant]
  4. ZOLADEX [Concomitant]
     Dates: start: 20020411
  5. FEMARA [Concomitant]
     Dates: start: 20020411

REACTIONS (1)
  - OSTEONECROSIS [None]
